FAERS Safety Report 5028111-0 (Version None)
Quarter: 2006Q2

REPORT INFORMATION
  Report Type: 
  Country: None (occurrence: None)
  Receive Date: 20060609
  Receipt Date: 20060526
  Transmission Date: 20061013
  Serious: Yes (Hospitalization, Other)
  Sender: FDA-Public Use
  Company Number: 8017161

PATIENT
  Age: 18 Year
  Sex: Female

DRUGS (2)
  1. KEPPRA [Suspect]
     Indication: PARTIAL SEIZURES
     Dosage: 1500 MG PO
     Route: 048
     Dates: start: 20060217, end: 20060430
  2. KEPPRA [Suspect]
     Indication: PARTIAL SEIZURES
     Dosage: 1000 MG 2/D PO
     Route: 048
     Dates: start: 20060501, end: 20060523

REACTIONS (6)
  - AGITATION [None]
  - ANGER [None]
  - CONVULSION [None]
  - FOAMING AT MOUTH [None]
  - INTENTIONAL SELF-INJURY [None]
  - SUICIDAL IDEATION [None]
